FAERS Safety Report 21989309 (Version 1)
Quarter: 2023Q1

REPORT INFORMATION
  Report Type: Spontaneous
  Country: US (occurrence: None)
  Receive Date: 20230212
  Receipt Date: 20230212
  Transmission Date: 20230418
  Serious: No
  Sender: FDA-Public Use
  Company Number: None

PATIENT
  Age: 73 Year
  Sex: Female
  Weight: 64.8 kg

DRUGS (2)
  1. LEVOCETIRIZINE DIHYDROCHLORIDE [Suspect]
     Active Substance: LEVOCETIRIZINE DIHYDROCHLORIDE
     Indication: Rhinorrhoea
     Dosage: OTHER QUANTITY : 1 TABLET(S);?FREQUENCY : DAILY;?
  2. ZYRTEC [Concomitant]
     Active Substance: CETIRIZINE HYDROCHLORIDE

REACTIONS (5)
  - Withdrawal syndrome [None]
  - Rhinorrhoea [None]
  - Product use issue [None]
  - Pruritus [None]
  - Therapy change [None]

NARRATIVE: CASE EVENT DATE: 20220301
